FAERS Safety Report 13195277 (Version 4)
Quarter: 2017Q1

REPORT INFORMATION
  Report Type: Spontaneous
  Country: US (occurrence: US)
  Receive Date: 20170208
  Receipt Date: 20170306
  Transmission Date: 20170428
  Serious: Yes (Other)
  Sender: FDA-Public Use
  Company Number: US-CIPLA LTD.-2017US01543

PATIENT

DRUGS (21)
  1. ALPRAZOLAM. [Suspect]
     Active Substance: ALPRAZOLAM
     Indication: ANXIETY
     Dosage: 1 MG, BID
     Route: 048
     Dates: start: 201603
  2. FORTIFY PROBIOTICS [Suspect]
     Active Substance: PROBIOTICS NOS
     Indication: SUPPLEMENTATION THERAPY
     Dosage: 30 BILLION UNITS, QD
     Route: 065
  3. BIOTIN [Suspect]
     Active Substance: BIOTIN
     Indication: ALOPECIA
     Dosage: 500 MCG, QD
     Route: 065
  4. MONTELUKAST SODIUM. [Suspect]
     Active Substance: MONTELUKAST SODIUM
     Indication: HYPERSENSITIVITY
     Dosage: 10 MG, QD, AT NIGHT, HAVE BEEN TAKING FOR YEARS
     Route: 065
  5. BELSOMRA [Suspect]
     Active Substance: SUVOREXANT
     Indication: INSOMNIA
     Dosage: 20 MCG, QD, AT BEDTIME
     Route: 065
     Dates: start: 201607
  6. MELATONIN [Suspect]
     Active Substance: MELATONIN
     Indication: INITIAL INSOMNIA
     Dosage: 200 MG, QD, AT NIGHT
     Route: 065
  7. LASIX [Suspect]
     Active Substance: FUROSEMIDE
     Indication: COUGH
  8. AMLODIPINE [Suspect]
     Active Substance: AMLODIPINE BESYLATE
     Indication: HYPERTENSION
     Dosage: 20 MG, QD
     Route: 065
  9. AMLODIPINE [Interacting]
     Active Substance: AMLODIPINE BESYLATE
     Dosage: 10 MG, QD
     Route: 065
  10. LEVOXYL [Suspect]
     Active Substance: LEVOTHYROXINE SODIUM
     Indication: HYPOTHYROIDISM
     Dosage: 100 MCG, QD
     Route: 065
  11. PRISTIQ EXTENDED-RELEASE [Interacting]
     Active Substance: DESVENLAFAXINE SUCCINATE
     Indication: DEPRESSION
     Dosage: 50 MG, QD
     Route: 048
  12. PRISTIQ EXTENDED-RELEASE [Interacting]
     Active Substance: DESVENLAFAXINE SUCCINATE
     Dosage: 50 MG, QD
     Route: 048
  13. PRISTIQ EXTENDED-RELEASE [Interacting]
     Active Substance: DESVENLAFAXINE SUCCINATE
     Dosage: 25 MG, UNK
     Route: 065
  14. PRISTIQ EXTENDED-RELEASE [Interacting]
     Active Substance: DESVENLAFAXINE SUCCINATE
     Indication: ADJUVANT THERAPY
     Dosage: 25 MG, QD
     Route: 065
  15. TRAMADOL. [Suspect]
     Active Substance: TRAMADOL
     Dosage: 50 MG, (FOUR TIMES A DAY PRN)
     Route: 065
  16. TIZANIDINE. [Suspect]
     Active Substance: TIZANIDINE
     Dosage: 4 MG, THREE TIMES A DAY PRN
     Route: 065
  17. LASIX [Suspect]
     Active Substance: FUROSEMIDE
     Indication: DYSPNOEA
     Dosage: 20 MG, BID
     Route: 065
  18. LASIX [Suspect]
     Active Substance: FUROSEMIDE
     Indication: OEDEMA
     Dosage: UNK
     Route: 065
  19. CETIRIZINE [Suspect]
     Active Substance: CETIRIZINE HYDROCHLORIDE
     Indication: ALLERGY PROPHYLAXIS
     Dosage: ONE TABLET A DAY FOR THREE DAYS EVERY THREE WEEKS BEFORE AND AFTER ALLERGY SHOT
     Route: 065
  20. PRISTIQ EXTENDED-RELEASE [Interacting]
     Active Substance: DESVENLAFAXINE SUCCINATE
     Dosage: 100 MG, QD
     Route: 065
  21. BUTRANS [Suspect]
     Active Substance: BUPRENORPHINE
     Indication: PAIN
     Dosage: 10 MCG PER HOUR FOR 7 HOURS
     Route: 065

REACTIONS (10)
  - Oedema [Recovered/Resolved]
  - Hypertension [Unknown]
  - Dyspnoea [Recovered/Resolved]
  - Malignant melanoma [Unknown]
  - Cardiomegaly [Not Recovered/Not Resolved]
  - Pulmonary mass [Unknown]
  - Cough [Recovered/Resolved]
  - Electrocardiogram QT prolonged [Not Recovered/Not Resolved]
  - Drug ineffective [Unknown]
  - Drug interaction [Unknown]
